FAERS Safety Report 5955249-3 (Version None)
Quarter: 2008Q4

REPORT INFORMATION
  Report Type: 
  Country: None (occurrence: None)
  Receive Date: 20081117
  Receipt Date: 20081107
  Transmission Date: 20090506
  Serious: No
  Sender: FDA-Public Use
  Company Number: US-B.I. PHARMACEUTICALS,INC./RIDGEFIELD-2008-BP-16324BP

PATIENT
  Age: 76 Year
  Sex: Female

DRUGS (7)
  1. MIRAPEX [Suspect]
     Indication: RESTLESS LEGS SYNDROME
     Dosage: .25MG
     Route: 048
     Dates: start: 20080826, end: 20081026
  2. ZYRTEC [Concomitant]
     Indication: HYPERSENSITIVITY
  3. TRICOR [Concomitant]
  4. TENARMIN [Concomitant]
  5. PRILOSEC [Concomitant]
  6. MECLIZINE [Concomitant]
  7. OMEPRAZOLE [Concomitant]

REACTIONS (4)
  - CONDITION AGGRAVATED [None]
  - DRUG INEFFECTIVE [None]
  - INSOMNIA [None]
  - RESTLESSNESS [None]
